FAERS Safety Report 5684073-4 (Version None)
Quarter: 2008Q1

REPORT INFORMATION
  Report Type: 
  Country: None (occurrence: None)
  Receive Date: 20080328
  Receipt Date: 20070402
  Transmission Date: 20080703
  Serious: Yes (Hospitalization)
  Sender: FDA-Public Use
  Company Number: US-AMGEN-US201701

PATIENT
  Sex: Male

DRUGS (11)
  1. NEULASTA [Suspect]
     Indication: CHEMOTHERAPY
     Route: 058
     Dates: start: 20061011, end: 20061011
  2. CAMPATH [Suspect]
     Route: 058
     Dates: start: 20060424, end: 20060929
  3. FLUDARABINE [Suspect]
     Route: 042
     Dates: start: 20060424, end: 20060929
  4. BACTRIM DS [Concomitant]
     Route: 065
  5. FAMVIR [Concomitant]
     Route: 065
  6. ARANESP [Concomitant]
     Route: 065
     Dates: start: 20061011
  7. ACETAMINOPHEN [Concomitant]
     Route: 065
     Dates: start: 20060424
  8. CIPROFLOXACIN [Concomitant]
     Route: 065
     Dates: start: 20060424
  9. AUGMENTIN '125' [Concomitant]
     Route: 065
     Dates: start: 20060424
  10. LEVAQUIN [Concomitant]
     Route: 065
     Dates: start: 20060630, end: 20060820
  11. AMOXICILLIN + CLAVULANATE POTASSIUM [Concomitant]
     Route: 065

REACTIONS (1)
  - FEBRILE NEUTROPENIA [None]
